FAERS Safety Report 16107610 (Version 1)
Quarter: 2019Q1

REPORT INFORMATION
  Report Type: Spontaneous
  Country: CN (occurrence: CN)
  Receive Date: 20190322
  Receipt Date: 20190322
  Transmission Date: 20190418
  Serious: Yes (Life-Threatening, Other)
  Sender: FDA-Public Use
  Company Number: CN-ASTRAZENECA-2019SE45078

PATIENT
  Age: 60 Year
  Sex: Male
  Weight: 47 kg

DRUGS (2)
  1. SODIUM CHLORIDE. [Suspect]
     Active Substance: SODIUM CHLORIDE
     Indication: ASTHMA
     Route: 065
  2. PULMICORT RESPULES [Suspect]
     Active Substance: BUDESONIDE
     Indication: ASTHMA
     Route: 055

REACTIONS (2)
  - Chest discomfort [Unknown]
  - Dyspnoea [Unknown]

NARRATIVE: CASE EVENT DATE: 20190212
